FAERS Safety Report 15475483 (Version 3)
Quarter: 2018Q4

REPORT INFORMATION
  Report Type: Spontaneous
  Country: US (occurrence: US)
  Receive Date: 20181008
  Receipt Date: 20181101
  Transmission Date: 20190205
  Serious: Yes (Hospitalization)
  Sender: FDA-Public Use
  Company Number: US-ACTELION-A-US2018-179873

PATIENT
  Age: 41 Year
  Sex: Female
  Weight: 76.64 kg

DRUGS (1)
  1. VELETRI [Suspect]
     Active Substance: EPOPROSTENOL
     Indication: PULMONARY HYPERTENSION
     Dosage: 23 NG/KG, PER MIN
     Route: 042

REACTIONS (5)
  - Catheter site haemorrhage [Unknown]
  - Device leakage [Recovered/Resolved]
  - Catheter management [Unknown]
  - Thrombosis in device [Unknown]
  - Device issue [Unknown]
